FAERS Safety Report 10360257 (Version 1)
Quarter: 2014Q3

REPORT INFORMATION
  Report Type: Spontaneous
  Country: US (occurrence: None)
  Receive Date: 20140801
  Receipt Date: 20140801
  Transmission Date: 20150326
  Serious: Yes (Other)
  Sender: FDA-Public Use
  Company Number: None

PATIENT
  Age: 71 Year
  Sex: Male
  Weight: 123.38 kg

DRUGS (8)
  1. GLIPIZIDE. [Concomitant]
     Active Substance: GLIPIZIDE
  2. TRICOR [Concomitant]
     Active Substance: FENOFIBRATE
  3. CRESTOR [Concomitant]
     Active Substance: ROSUVASTATIN CALCIUM
  4. VITAMIN D3 [Concomitant]
     Active Substance: CHOLECALCIFEROL
  5. FISH OIL [Concomitant]
     Active Substance: FISH OIL
  6. WARFARIN [Concomitant]
     Active Substance: WARFARIN
  7. XELJANZ [Suspect]
     Active Substance: TOFACITINIB CITRATE
     Indication: RHEUMATOID ARTHRITIS
     Route: 048
     Dates: start: 20140227, end: 20140626
  8. MULTIVITAMIN [Concomitant]
     Active Substance: VITAMINS

REACTIONS (3)
  - Rash erythematous [None]
  - Pruritus [None]
  - Rash maculo-papular [None]

NARRATIVE: CASE EVENT DATE: 20140515
